FAERS Safety Report 17231155 (Version 1)
Quarter: 2020Q1

REPORT INFORMATION
  Report Type: Spontaneous
  Country: US (occurrence: US)
  Receive Date: 20200103
  Receipt Date: 20200103
  Transmission Date: 20200409
  Serious: Yes (Death, Hospitalization, Other)
  Sender: FDA-Public Use
  Company Number: US-ASTRAZENECA-2020SE00349

PATIENT
  Age: 19305 Day
  Sex: Male
  Weight: 67.1 kg

DRUGS (48)
  1. PROTONIX [Suspect]
     Active Substance: PANTOPRAZOLE SODIUM
     Indication: GASTROOESOPHAGEAL REFLUX DISEASE
     Route: 065
     Dates: start: 2005, end: 2008
  2. ALBUTEROL. [Concomitant]
     Active Substance: ALBUTEROL
     Route: 065
  3. INSULIN [Concomitant]
     Active Substance: INSULIN NOS
     Route: 065
  4. PRILOSEC [Suspect]
     Active Substance: OMEPRAZOLE MAGNESIUM
     Indication: ULCER
     Route: 048
  5. PRILOSEC [Suspect]
     Active Substance: OMEPRAZOLE MAGNESIUM
     Indication: GASTROOESOPHAGEAL REFLUX DISEASE
     Dosage: GENERIC
     Route: 065
     Dates: start: 200401
  6. PROTONIX [Suspect]
     Active Substance: PANTOPRAZOLE SODIUM
     Indication: GASTROOESOPHAGEAL REFLUX DISEASE
     Dosage: GENERIC
     Route: 065
     Dates: start: 2009
  7. RABEPRAZOLE [Suspect]
     Active Substance: RABEPRAZOLE
     Indication: ULCER
     Route: 048
     Dates: start: 2009, end: 2015
  8. FEXOFENADINE [Concomitant]
     Active Substance: FEXOFENADINE HYDROCHLORIDE
     Route: 065
  9. BUSPIRONE [Concomitant]
     Active Substance: BUSPIRONE HYDROCHLORIDE
     Route: 065
  10. ASPIRIN. [Concomitant]
     Active Substance: ASPIRIN
     Route: 065
  11. NITROGLYCERIN. [Concomitant]
     Active Substance: NITROGLYCERIN
     Route: 065
  12. TRAMADOL. [Concomitant]
     Active Substance: TRAMADOL
     Route: 065
  13. HCTZ/LOSARTAN [Concomitant]
     Route: 065
  14. PRILOSEC [Suspect]
     Active Substance: OMEPRAZOLE MAGNESIUM
     Indication: ULCER
     Dosage: GENERIC
     Route: 065
     Dates: start: 200401
  15. PROTONIX [Suspect]
     Active Substance: PANTOPRAZOLE SODIUM
     Indication: ULCER
     Dosage: GENERIC
     Route: 065
     Dates: start: 2009
  16. RANITIDINE. [Concomitant]
     Active Substance: RANITIDINE
     Route: 065
  17. PROTONIX [Suspect]
     Active Substance: PANTOPRAZOLE SODIUM
     Indication: ULCER
     Route: 065
     Dates: start: 2005, end: 2008
  18. SERTRALINE HCL [Concomitant]
     Active Substance: SERTRALINE HYDROCHLORIDE
     Route: 065
  19. CLONAZEPAM. [Concomitant]
     Active Substance: CLONAZEPAM
     Route: 065
  20. BISACODYL. [Concomitant]
     Active Substance: BISACODYL
     Route: 065
  21. PRILOSEC [Suspect]
     Active Substance: OMEPRAZOLE MAGNESIUM
     Indication: GASTROOESOPHAGEAL REFLUX DISEASE
     Route: 048
  22. SIMVASTATIN. [Concomitant]
     Active Substance: SIMVASTATIN
     Route: 065
  23. DIAZEPAM. [Concomitant]
     Active Substance: DIAZEPAM
     Route: 065
  24. LOSARTAN. [Concomitant]
     Active Substance: LOSARTAN
     Route: 065
  25. MESALAMINE. [Concomitant]
     Active Substance: MESALAMINE
     Route: 065
  26. METHOCARBAMOL. [Concomitant]
     Active Substance: METHOCARBAMOL
     Route: 065
  27. CLONAZEPAM. [Concomitant]
     Active Substance: CLONAZEPAM
     Route: 065
  28. LORATADINE. [Concomitant]
     Active Substance: LORATADINE
     Route: 065
  29. TERIPARATIDE [Concomitant]
     Active Substance: TERIPARATIDE
     Route: 065
  30. IBUPROFEN. [Concomitant]
     Active Substance: IBUPROFEN
     Route: 065
  31. PREVACID [Suspect]
     Active Substance: LANSOPRAZOLE
     Indication: GASTROOESOPHAGEAL REFLUX DISEASE
     Route: 065
     Dates: start: 2001, end: 2005
  32. AMOXICILLIN. [Concomitant]
     Active Substance: AMOXICILLIN
     Route: 065
  33. CALCIUM [Concomitant]
     Active Substance: CALCIUM
     Route: 065
  34. METOPROLOL TARTRATE. [Concomitant]
     Active Substance: METOPROLOL TARTRATE
     Route: 065
  35. GLIPIZIDE. [Concomitant]
     Active Substance: GLIPIZIDE
     Route: 065
  36. PREVACID [Suspect]
     Active Substance: LANSOPRAZOLE
     Indication: ULCER
     Route: 065
     Dates: start: 2001, end: 2005
  37. DOXYCYCLINE HYCLATE. [Concomitant]
     Active Substance: DOXYCYCLINE HYCLATE
     Route: 065
  38. FLUOXETINE [Concomitant]
     Active Substance: FLUOXETINE HYDROCHLORIDE
     Route: 065
  39. ZOLPIDEM TARTRATE. [Concomitant]
     Active Substance: ZOLPIDEM TARTRATE
     Route: 065
  40. GUAIFENESIN. [Concomitant]
     Active Substance: GUAIFENESIN
     Route: 065
  41. LISINOPRIL. [Concomitant]
     Active Substance: LISINOPRIL
     Route: 065
  42. VITAMIN D3 [Concomitant]
     Active Substance: CHOLECALCIFEROL
     Route: 065
  43. RABEPRAZOLE [Suspect]
     Active Substance: RABEPRAZOLE
     Indication: GASTROOESOPHAGEAL REFLUX DISEASE
     Route: 048
     Dates: start: 2009, end: 2015
  44. PREDNISONE. [Concomitant]
     Active Substance: PREDNISONE
     Route: 065
  45. VITAMIN D [Concomitant]
     Active Substance: VITAMIN D NOS
     Route: 065
  46. LORAZEPAM. [Concomitant]
     Active Substance: LORAZEPAM
     Route: 065
  47. ATORVASTATIN [Concomitant]
     Active Substance: ATORVASTATIN
     Route: 065
  48. RANITIDINE. [Concomitant]
     Active Substance: RANITIDINE
     Route: 065

REACTIONS (4)
  - Chronic kidney disease [Unknown]
  - Renal failure [Unknown]
  - Renal tubular necrosis [Unknown]
  - Acute kidney injury [Unknown]

NARRATIVE: CASE EVENT DATE: 20150116
